FAERS Safety Report 4750912-4 (Version None)
Quarter: 2005Q3

REPORT INFORMATION
  Report Type: 
  Country: None (occurrence: None)
  Receive Date: 20050818
  Receipt Date: 20050801
  Transmission Date: 20060218
  Serious: Yes (Disabling)
  Sender: FDA-Public Use
  Company Number: DSA_24216_2004

PATIENT
  Sex: Male

DRUGS (15)
  1. ATIVAN [Suspect]
     Indication: ANXIETY
     Dosage: 1 MG PO
     Route: 048
     Dates: start: 19801030, end: 19810129
  2. ATIVAN [Suspect]
     Indication: STRESS
     Dosage: 1 MG PO
     Route: 048
     Dates: start: 19801030, end: 19810129
  3. ATIVAN [Suspect]
     Indication: ANXIETY
     Dosage: 2 MG PO
     Route: 048
     Dates: start: 19810129, end: 19810408
  4. ATIVAN [Suspect]
     Indication: STRESS
     Dosage: 2 MG PO
     Route: 048
     Dates: start: 19810129, end: 19810408
  5. ATIVAN [Suspect]
     Indication: ANXIETY
     Dosage: 1 MG PO
     Route: 048
     Dates: start: 19810408, end: 19850503
  6. ATIVAN [Suspect]
     Indication: SOMNOLENCE
     Dosage: 1 MG PO
     Route: 048
     Dates: start: 19810408, end: 19850503
  7. ATIVAN [Suspect]
     Indication: STRESS
     Dosage: 1 MG PO
     Route: 048
     Dates: start: 19810408, end: 19850503
  8. LORAZEPAM [Suspect]
     Indication: ANXIETY
     Dosage: 1 MG PO
     Route: 048
     Dates: start: 19850503, end: 19870101
  9. LORAZEPAM [Suspect]
     Indication: STRESS
     Dosage: 1 MG PO
     Route: 048
     Dates: start: 19850503, end: 19870101
  10. SCHERIPROCT [Concomitant]
  11. FRISIUM [Concomitant]
  12. SERC   DUPHAR [Concomitant]
  13. SERC [Concomitant]
  14. BETROVATE CREAM [Concomitant]
  15. SUDAFED 12 HOUR [Concomitant]

REACTIONS (42)
  - ABDOMINAL DISTENSION [None]
  - AMNESIA [None]
  - ASTHENIA [None]
  - BACK PAIN [None]
  - BREAST CYST [None]
  - CHEST DISCOMFORT [None]
  - CHEST PAIN [None]
  - COUGH [None]
  - DEPRESSED LEVEL OF CONSCIOUSNESS [None]
  - DEPRESSION [None]
  - DISTURBANCE IN ATTENTION [None]
  - DIZZINESS [None]
  - DRUG DEPENDENCE [None]
  - DRUG WITHDRAWAL SYNDROME [None]
  - GASTRITIS [None]
  - GASTROOESOPHAGEAL REFLUX DISEASE [None]
  - GENERAL PHYSICAL HEALTH DETERIORATION [None]
  - HEART RATE INCREASED [None]
  - HYPOACUSIS [None]
  - INSOMNIA [None]
  - IRRITABILITY [None]
  - MENIERE'S DISEASE [None]
  - MIDDLE EAR EFFUSION [None]
  - MUSCLE SPASMS [None]
  - NERVOUSNESS [None]
  - OEDEMA [None]
  - PAIN IN EXTREMITY [None]
  - PALPITATIONS [None]
  - PANIC ATTACK [None]
  - PERSONALITY CHANGE [None]
  - PSYCHIATRIC SYMPTOM [None]
  - ROAD TRAFFIC ACCIDENT [None]
  - SCOTOMA [None]
  - SLEEP DISORDER [None]
  - SPUTUM DISCOLOURED [None]
  - STRESS [None]
  - STRESS AT WORK [None]
  - SURGERY [None]
  - TENSION [None]
  - TINNITUS [None]
  - TYMPANIC MEMBRANE PERFORATION [None]
  - VIRAL INFECTION [None]
